FAERS Safety Report 12678898 (Version 1)
Quarter: 2016Q3

REPORT INFORMATION
  Report Type: Report from Study
  Country: US (occurrence: US)
  Receive Date: 20160824
  Receipt Date: 20160824
  Transmission Date: 20161109
  Serious: Yes (Hospitalization)
  Sender: FDA-Public Use
  Company Number: US-ROCHE-1816427

PATIENT
  Age: 75 Year
  Sex: Female
  Weight: 74.8 kg

DRUGS (8)
  1. DOCETAXEL. [Suspect]
     Active Substance: DOCETAXEL
     Indication: INVASIVE BREAST CARCINOMA
     Dosage: OVER 60 MIN ON DAY 1,
     Route: 042
     Dates: start: 20160208
  2. PERTUZUMAB [Suspect]
     Active Substance: PERTUZUMAB
     Indication: INVASIVE BREAST CARCINOMA
     Dosage: CYCLE 1 OVER 60 MIN ON DAY 1 (LOADING DOSE)
     Route: 042
     Dates: start: 20160208
  3. DOCETAXEL. [Suspect]
     Active Substance: DOCETAXEL
     Dosage: OVER 60 MIN ON DAY 1 (CYCLE 2-6), ON 03/MAY/2016 MOST RECENT DOSE
     Route: 042
     Dates: start: 20160208
  4. TRASTUZUMAB [Suspect]
     Active Substance: TRASTUZUMAB
     Dosage: (MAINTENANCE DOSE) OVER 30-60 MIN (CYCLE 2-6) MOST RECENT DOSE WAS RECEIVED ON 03/MAY/2016. (IT WAS
     Route: 042
  5. CARBOPLATIN. [Suspect]
     Active Substance: CARBOPLATIN
     Indication: INVASIVE BREAST CARCINOMA
     Dosage: (AUC): 6 MG/ML/MIN OVER 30-60 MIN ON DAY 1
     Route: 042
     Dates: start: 20160208
  6. TRASTUZUMAB [Suspect]
     Active Substance: TRASTUZUMAB
     Indication: INVASIVE BREAST CARCINOMA
     Dosage: (CYCLE), (LOADING DOSE) OVER 90 MIN ON DAY 1
     Route: 042
     Dates: start: 20160208
  7. PERTUZUMAB [Suspect]
     Active Substance: PERTUZUMAB
     Dosage: (MAINTENANCE DOSE) OVER 30-60 MIN ON DAY 1 (CYCLE 2-6), ON 03/MAY/2016, RECEIVED MOST RECENT DOSE,
     Route: 042
  8. CARBOPLATIN. [Suspect]
     Active Substance: CARBOPLATIN
     Dosage: ON 03/MAY/2016 MOST RECENT DOSE
     Route: 042

REACTIONS (1)
  - Pulmonary oedema [Recovering/Resolving]

NARRATIVE: CASE EVENT DATE: 20160504
